FAERS Safety Report 24731730 (Version 1)
Quarter: 2024Q4

REPORT INFORMATION
  Report Type: Spontaneous
  Country: JP (occurrence: JP)
  Receive Date: 20241213
  Receipt Date: 20241213
  Transmission Date: 20250114
  Serious: Yes (Other)
  Sender: ELI LILLY AND COMPANY
  Company Number: JP-ELI_LILLY_AND_COMPANY-JP202412006825

PATIENT
  Age: 45 Year
  Sex: Male

DRUGS (1)
  1. OLUMIANT [Suspect]
     Active Substance: BARICITINIB
     Indication: Juvenile idiopathic arthritis
     Dosage: 4 MG, DAILY
     Route: 048
     Dates: start: 202405

REACTIONS (2)
  - Salivary gland neoplasm [Not Recovered/Not Resolved]
  - Parotid gland enlargement [Not Recovered/Not Resolved]

NARRATIVE: CASE EVENT DATE: 20241101
